FAERS Safety Report 15921345 (Version 2)
Quarter: 2019Q1

REPORT INFORMATION
  Report Type: Spontaneous
  Country: US (occurrence: US)
  Receive Date: 20190205
  Receipt Date: 20190219
  Transmission Date: 20190417
  Serious: No
  Sender: FDA-Public Use
  Company Number: US-ALLERGAN-1722253US

PATIENT
  Age: 54 Year
  Sex: Male

DRUGS (5)
  1. BOTOX [Suspect]
     Active Substance: ONABOTULINUMTOXINA
     Indication: ANAL SPHINCTER ATONY
     Dosage: 100 UNITS, SINGLE
     Route: 030
     Dates: start: 20160606, end: 20160606
  2. BOTOX [Suspect]
     Active Substance: ONABOTULINUMTOXINA
     Dosage: 100 UNITS, SINGLE
     Route: 030
     Dates: start: 20170104, end: 20170104
  3. ZETIA [Concomitant]
     Active Substance: EZETIMIBE
     Indication: PRODUCT USED FOR UNKNOWN INDICATION
     Dosage: 10 MG, QD
     Route: 065
  4. BOTOX [Suspect]
     Active Substance: ONABOTULINUMTOXINA
     Dosage: 100 UNITS, SINGLE
     Route: 030
     Dates: start: 20160906, end: 20160906
  5. BOTOX [Suspect]
     Active Substance: ONABOTULINUMTOXINA
     Indication: PROCTALGIA
     Dosage: 100 UNITS, SINGLE
     Route: 030
     Dates: start: 201602, end: 201602

REACTIONS (1)
  - Off label use [Unknown]
